FAERS Safety Report 11330281 (Version 1)
Quarter: 2015Q3

REPORT INFORMATION
  Report Type: Spontaneous
  Country: US (occurrence: None)
  Receive Date: 20150730
  Receipt Date: 20150730
  Transmission Date: 20151125
  Serious: Yes (Life-Threatening, Hospitalization)
  Sender: FDA-Public Use
  Company Number: None

PATIENT
  Age: 80 Year
  Sex: Male
  Weight: 118 kg

DRUGS (2)
  1. DRONEDARONE [Suspect]
     Active Substance: DRONEDARONE
     Indication: CARDIAC FAILURE CONGESTIVE
     Route: 048
     Dates: start: 20140611, end: 20150615
  2. DRONEDARONE [Suspect]
     Active Substance: DRONEDARONE
     Indication: VENTRICULAR TACHYCARDIA
     Route: 048
     Dates: start: 20140611, end: 20150615

REACTIONS (3)
  - Cardiac failure [None]
  - Palpitations [None]
  - Ventricular tachycardia [None]

NARRATIVE: CASE EVENT DATE: 20150615
